FAERS Safety Report 5197126-4 (Version None)
Quarter: 2007Q1

REPORT INFORMATION
  Report Type: 
  Country: None (occurrence: None)
  Receive Date: 20070103
  Receipt Date: 20070102
  Transmission Date: 20070707
  Serious: Yes (Life-Threatening, Hospitalization, Other)
  Sender: FDA-Public Use
  Company Number: US-GLAXOSMITHKLINE-A0630632A

PATIENT
  Age: 87 Year
  Sex: Female

DRUGS (7)
  1. COREG [Suspect]
     Dosage: 3.125MG TWICE PER DAY
     Route: 048
     Dates: start: 20061115, end: 20061115
  2. LISINOPRIL [Concomitant]
     Dosage: 10MG PER DAY
     Route: 048
     Dates: start: 20050201, end: 20061101
  3. LEVOXYL [Concomitant]
     Indication: HYPOTHYROIDISM
     Dosage: 100MG PER DAY
     Route: 048
     Dates: start: 20050201
  4. DIGOXIN [Concomitant]
     Route: 048
     Dates: start: 20060301, end: 20061101
  5. COMBIVENT [Concomitant]
     Indication: CHRONIC OBSTRUCTIVE PULMONARY DISEASE
     Dosage: 2PUFF FOUR TIMES PER DAY
     Route: 055
     Dates: start: 20060301
  6. FUROSEMIDE [Concomitant]
     Route: 048
     Dates: start: 20050901, end: 20061101
  7. METOCLOPRAMIDE [Concomitant]
     Dosage: 5MG THREE TIMES PER DAY
     Route: 048
     Dates: start: 20060401, end: 20061101

REACTIONS (4)
  - ANAPHYLACTIC REACTION [None]
  - ANGIOEDEMA [None]
  - BRONCHOSPASM [None]
  - RESPIRATORY DISTRESS [None]
